FAERS Safety Report 5890346-2 (Version None)
Quarter: 2008Q3

REPORT INFORMATION
  Report Type: 
  Country: None (occurrence: None)
  Receive Date: 20080918
  Receipt Date: 20080902
  Transmission Date: 20090109
  Serious: Yes (Hospitalization, Disabling)
  Sender: FDA-Public Use
  Company Number: 2008S1013810

PATIENT
  Age: 40 Year
  Sex: Female

DRUGS (1)
  1. ATENOLOL [Suspect]
     Indication: MIGRAINE
     Dosage: 25 MG; AT BEDTIME;ORAL
     Route: 048
     Dates: start: 20051220, end: 20051230

REACTIONS (48)
  - ANAPHYLACTIC REACTION [None]
  - ANOREXIA [None]
  - ASTHENIA [None]
  - BLEPHAROSPASM [None]
  - CHEST DISCOMFORT [None]
  - CHEST PAIN [None]
  - CHILLS [None]
  - CHLOASMA [None]
  - CONFUSIONAL STATE [None]
  - DISSOCIATIVE DISORDER [None]
  - DYSPHONIA [None]
  - DYSPNOEA [None]
  - EAR DISCOMFORT [None]
  - EAR PAIN [None]
  - EMOTIONAL DISORDER [None]
  - FACIAL PAIN [None]
  - FATIGUE [None]
  - FEELING ABNORMAL [None]
  - HAEMOPTYSIS [None]
  - HEADACHE [None]
  - HEART RATE IRREGULAR [None]
  - HYPOAESTHESIA [None]
  - INFLAMMATION [None]
  - LETHARGY [None]
  - MALAISE [None]
  - MEMORY IMPAIRMENT [None]
  - MUSCLE TWITCHING [None]
  - NASAL SEPTUM DEVIATION [None]
  - PAIN IN EXTREMITY [None]
  - PALPITATIONS [None]
  - PARAESTHESIA [None]
  - PERIPHERAL COLDNESS [None]
  - PHARYNGEAL OEDEMA [None]
  - PYREXIA [None]
  - RETCHING [None]
  - RHINORRHOEA [None]
  - SENSATION OF BLOOD FLOW [None]
  - SINUS CONGESTION [None]
  - SNEEZING [None]
  - SWELLING FACE [None]
  - TONGUE DISORDER [None]
  - VARICOSE VEIN [None]
  - VASCULITIS [None]
  - VISUAL IMPAIRMENT [None]
  - WEGENER'S GRANULOMATOSIS [None]
  - WEIGHT DECREASED [None]
  - WHEEZING [None]
  - WITHDRAWAL SYNDROME [None]
